FAERS Safety Report 18355517 (Version 2)
Quarter: 2020Q4

REPORT INFORMATION
  Report Type: Spontaneous
  Country: JP (occurrence: JP)
  Receive Date: 20201007
  Receipt Date: 20201014
  Transmission Date: 20210114
  Serious: Yes (Death)
  Sender: FDA-Public Use
  Company Number: JP-JNJFOC-A-CH2017-163188

PATIENT
  Age: 90 Year
  Sex: Female

DRUGS (21)
  1. TRANEXAMIC ACID. [Concomitant]
     Active Substance: TRANEXAMIC ACID
  2. MAGMITT [Concomitant]
     Active Substance: MAGNESIUM OXIDE
  3. SODIUM RABEPRAZOLE [Concomitant]
     Active Substance: RABEPRAZOLE SODIUM
  4. ALPRAZOLAM. [Concomitant]
     Active Substance: ALPRAZOLAM
  5. FERROUS CITRATE NA [Concomitant]
     Active Substance: SODIUM FERROUS CITRATE
  6. ZOLPIDEM TARTATE [Concomitant]
     Active Substance: ZOLPIDEM TARTRATE
  7. OXYGEN. [Concomitant]
     Active Substance: OXYGEN
  8. OLMESARTAN MEDOXOMIL. [Concomitant]
     Active Substance: OLMESARTAN MEDOXOMIL
  9. AMITIZA [Concomitant]
     Active Substance: LUBIPROSTONE
  10. OLMETEC [Concomitant]
     Active Substance: OLMESARTAN MEDOXOMIL
  11. BONOTEO [Concomitant]
     Active Substance: MINODRONIC ACID
  12. OPSUMIT [Suspect]
     Active Substance: MACITENTAN
     Indication: PULMONARY ARTERIAL HYPERTENSION
     Dosage: 5 MG, OD
     Route: 048
     Dates: start: 20171114
  13. FUROSEMIDE. [Concomitant]
     Active Substance: FUROSEMIDE
  14. WARFARIN K [Concomitant]
     Active Substance: WARFARIN POTASSIUM
  15. KETOPROFEN. [Concomitant]
     Active Substance: KETOPROFEN
  16. SODIUM PICOSULFATE [Concomitant]
     Active Substance: SODIUM PICOSULFATE
  17. LOXOPROFEN SODIUM DIHYDRATE [Concomitant]
     Active Substance: LOXOPROFEN SODIUM DIHYDRATE
  18. MINODRONIC ACID [Concomitant]
     Active Substance: MINODRONIC ACID
  19. ADCIRCA [Concomitant]
     Active Substance: TADALAFIL
  20. REBAMIPIDE [Concomitant]
     Active Substance: REBAMIPIDE
  21. ACETAMINOPHEN. [Concomitant]
     Active Substance: ACETAMINOPHEN

REACTIONS (5)
  - Blood potassium increased [Recovered/Resolved]
  - Pneumonia [Fatal]
  - Cholecystitis [Fatal]
  - Decreased appetite [Recovered/Resolved]
  - Chest pain [Recovered/Resolved]

NARRATIVE: CASE EVENT DATE: 20171121
